FAERS Safety Report 4731720-7 (Version None)
Quarter: 2005Q3

REPORT INFORMATION
  Report Type: 
  Country: None (occurrence: None)
  Receive Date: 20050802
  Receipt Date: 20050729
  Transmission Date: 20060218
  Serious: Yes (Death, Other)
  Sender: FDA-Public Use
  Company Number: PHBS2005ID10961

PATIENT
  Age: 27 Year
  Sex: Male
  Weight: 72 kg

DRUGS (6)
  1. CLOZARIL [Suspect]
     Indication: SCHIZOPHRENIA, PARANOID TYPE
     Dosage: 100 MG, TID
     Route: 048
     Dates: start: 20040301
  2. OLANZAPINE [Concomitant]
  3. HALOPERIDOL [Concomitant]
     Dosage: 5 MG, TID
     Dates: start: 20050328
  4. TRILEPTAL [Concomitant]
     Dosage: 300 MG, TID
     Route: 048
  5. TRIHEXYPHENIDYL HCL [Concomitant]
     Dosage: 2 MG, TID
  6. CHLORPROMAZINE HCL [Concomitant]
     Dosage: 25 MG, QD

REACTIONS (2)
  - HYPERGLYCAEMIA [None]
  - NEUROLEPTIC MALIGNANT SYNDROME [None]
